FAERS Safety Report 24665356 (Version 1)
Quarter: 2024Q4

REPORT INFORMATION
  Report Type: Spontaneous
  Country: US (occurrence: US)
  Receive Date: 20241126
  Receipt Date: 20241126
  Transmission Date: 20250114
  Serious: No
  Sender: BAYER HEALTHCARE PHARMACEUTICALS INC.
  Company Number: US-BAYER-2024A164941

PATIENT
  Age: 39 Year
  Sex: Female

DRUGS (3)
  1. MIRENA [Suspect]
     Active Substance: LEVONORGESTREL
     Indication: Contraception
     Dosage: 20?G/DAY
     Route: 015
     Dates: start: 202406
  2. BENADRYL [Concomitant]
     Active Substance: DIPHENHYDRAMINE HYDROCHLORIDE
     Indication: Urticaria
  3. COSENTYX [Concomitant]
     Active Substance: SECUKINUMAB

REACTIONS (5)
  - Urticaria [None]
  - Pruritus [None]
  - Rash macular [None]
  - Skin burning sensation [None]
  - Lymphoedema [None]
